FAERS Safety Report 9178597 (Version 1)
Quarter: 2013Q1

REPORT INFORMATION
  Report Type: Spontaneous
  Country: US (occurrence: US)
  Receive Date: 20130321
  Receipt Date: 20130321
  Transmission Date: 20140127
  Serious: No
  Sender: FDA-Public Use
  Company Number: US-ASTRAZENECA-2013SE16443

PATIENT
  Age: 77 Year
  Sex: Female

DRUGS (10)
  1. CRESTOR [Suspect]
     Indication: BLOOD CHOLESTEROL INCREASED
     Route: 048
  2. PERCOCET [Concomitant]
     Indication: PAIN
     Dates: start: 1984
  3. PLAVIX [Concomitant]
  4. ASPIRIN [Concomitant]
  5. CARDIZEM CD [Concomitant]
  6. VITAMIN D [Concomitant]
  7. DITROPAN [Concomitant]
     Indication: BLADDER DISORDER
  8. BYSTOLIC [Concomitant]
     Indication: CARDIAC DISORDER
  9. VITAMINS [Concomitant]
     Dosage: UNK
  10. STOOL SOFTENER [Concomitant]
     Dosage: UNK

REACTIONS (1)
  - Chromaturia [Not Recovered/Not Resolved]
